FAERS Safety Report 14848210 (Version 1)
Quarter: 2018Q2

REPORT INFORMATION
  Report Type: Spontaneous
  Country: DE (occurrence: DE)
  Receive Date: 20180504
  Receipt Date: 20180504
  Transmission Date: 20180711
  Serious: Yes (Hospitalization)
  Sender: FDA-Public Use
  Company Number: DE-009507513-1804DEU011212

PATIENT
  Age: 85 Year
  Sex: Male

DRUGS (8)
  1. ENALAPRIL MALEATE (+) HYDROCHLOROTHIAZIDE [Concomitant]
     Active Substance: ENALAPRIL MALEATE\HYDROCHLOROTHIAZIDE
     Dosage: 20/12.5 MG, 1-0-0-0
  2. GALACORDIN [Concomitant]
     Dosage: 1-0-0-1
  3. INSULIN GLARGINE BIOSIMILAR [Concomitant]
     Active Substance: INSULIN GLARGINE
     Dosage: 12-0-0-0
  4. CARBIDOPA (+) LEVODOPA [Suspect]
     Active Substance: CARBIDOPA\LEVODOPA
     Dosage: 1-1-1-0
  5. TAMSULOSIN HYDROCHLORIDE. [Concomitant]
     Active Substance: TAMSULOSIN HYDROCHLORIDE
     Dosage: 0-0-1-0
  6. METFORMIN [Concomitant]
     Active Substance: METFORMIN HYDROCHLORIDE
     Dosage: 500 MG, 1-1-1-0
  7. SIMVASTATIN. [Concomitant]
     Active Substance: SIMVASTATIN
     Dosage: 0-0-0.5-0
  8. ASS 100 [Concomitant]
     Active Substance: ASPIRIN
     Dosage: 100 MG, 0-1-0-0

REACTIONS (3)
  - Cough [Unknown]
  - Asthenia [Unknown]
  - General physical health deterioration [Unknown]
